FAERS Safety Report 20582613 (Version 1)
Quarter: 2022Q1

REPORT INFORMATION
  Report Type: Spontaneous
  Country: US (occurrence: US)
  Receive Date: 20220311
  Receipt Date: 20220311
  Transmission Date: 20220424
  Serious: Yes (Other)
  Sender: FDA-Public Use
  Company Number: US-VERTEX PHARMACEUTICALS-2022-003866

PATIENT
  Age: 66 Year
  Sex: Male

DRUGS (3)
  1. TRIKAFTA [Interacting]
     Active Substance: ELEXACAFTOR\IVACAFTOR\TEZACAFTOR
     Indication: Cystic fibrosis
     Dosage: UNK
     Route: 048
  2. MOBIC [Interacting]
     Active Substance: MELOXICAM
     Indication: Product used for unknown indication
     Dosage: 7.5MG
     Route: 048
  3. MOBIC [Interacting]
     Active Substance: MELOXICAM
     Dosage: 15 MG
     Route: 048

REACTIONS (3)
  - Aspartate aminotransferase increased [Recovering/Resolving]
  - Alanine aminotransferase increased [Recovering/Resolving]
  - Drug interaction [Unknown]
